FAERS Safety Report 6219071-5 (Version None)
Quarter: 2009Q2

REPORT INFORMATION
  Report Type: 
  Country: None (occurrence: None)
  Receive Date: 20090609
  Receipt Date: 20070731
  Transmission Date: 20091009
  Serious: Yes (Other)
  Sender: FDA-Public Use
  Company Number: US-ASTRAZENECA-2007UW11004

PATIENT
  Age: 18246 Day
  Sex: Female
  Weight: 86.6 kg

DRUGS (7)
  1. SEROQUEL [Suspect]
     Indication: DEPRESSION
     Route: 048
     Dates: start: 19991201, end: 20060808
  2. SEROQUEL [Suspect]
     Dosage: 25 - 200 MG DAILY
     Route: 048
     Dates: start: 20030203
  3. ZYPREXA [Concomitant]
     Route: 048
     Dates: start: 20020101, end: 20020101
  4. LIPITOR [Concomitant]
     Dates: start: 20040305
  5. HYZAAR [Concomitant]
     Dosage: STRENGTH - 100/ 25 MG, DOSE - 100 / 25 MG DAILY
     Dates: start: 20050104
  6. XANAX [Concomitant]
     Dates: start: 20020606
  7. ATENOLOL [Concomitant]
     Dates: start: 20051118

REACTIONS (4)
  - DIABETES MELLITUS [None]
  - DIABETIC NEUROPATHY [None]
  - TYPE 1 DIABETES MELLITUS [None]
  - TYPE 2 DIABETES MELLITUS [None]
